FAERS Safety Report 13730056 (Version 1)
Quarter: 2017Q3

REPORT INFORMATION
  Report Type: Spontaneous
  Country: US (occurrence: US)
  Receive Date: 20170707
  Receipt Date: 20170707
  Transmission Date: 20171127
  Serious: Yes (Other)
  Sender: FDA-Public Use
  Company Number: US-MYLANLABS-2017M1040251

PATIENT

DRUGS (1)
  1. ADENOSINE. [Suspect]
     Active Substance: ADENOSINE
     Indication: CARDIAC STRESS TEST
     Dosage: 140 MICROG/KG/MIN
     Route: 050

REACTIONS (1)
  - Myocardial infarction [Unknown]
